FAERS Safety Report 7390541-X (Version None)
Quarter: 2011Q2

REPORT INFORMATION
  Report Type: 
  Country: None (occurrence: None)
  Receive Date: 20110403
  Receipt Date: 20091105
  Transmission Date: 20111010
  Serious: Yes (Other)
  Sender: FDA-Public Use
  Company Number: PHHY2009DE67491

PATIENT
  Sex: Female

DRUGS (1)
  1. EXTAVIA [Suspect]
     Dosage: UNK
     Route: 058
     Dates: start: 20091006

REACTIONS (6)
  - SEASONAL ALLERGY [None]
  - CATARACT [None]
  - TEMPERATURE INTOLERANCE [None]
  - EYE INFECTION [None]
  - NERVOUSNESS [None]
  - INJECTION SITE ERYTHEMA [None]
